FAERS Safety Report 4767527-4 (Version None)
Quarter: 2005Q3

REPORT INFORMATION
  Report Type: 
  Country: None (occurrence: None)
  Receive Date: 20050913
  Receipt Date: 20050901
  Transmission Date: 20060218
  Serious: Yes (Other)
  Sender: FDA-Public Use
  Company Number: 2005UW13071

PATIENT
  Age: 36 Year
  Sex: Female
  Weight: 58.1 kg

DRUGS (2)
  1. ATACAND [Suspect]
     Indication: HYPERTENSION
     Route: 048
  2. HYDROCHLOROTHIAZIDE [Concomitant]

REACTIONS (2)
  - DIZZINESS [None]
  - LOSS OF CONSCIOUSNESS [None]
